FAERS Safety Report 22151636 (Version 1)
Quarter: 2023Q1

REPORT INFORMATION
  Report Type: Spontaneous
  Country: IT (occurrence: IT)
  Receive Date: 20230329
  Receipt Date: 20230329
  Transmission Date: 20230417
  Serious: Yes (Hospitalization, Other)
  Sender: FDA-Public Use
  Company Number: None

PATIENT
  Age: 45 Year
  Sex: Female

DRUGS (8)
  1. ZOLPIDEM TARTRATE [Suspect]
     Active Substance: ZOLPIDEM TARTRATE
     Indication: Drug abuse
     Dosage: 7 DF, QD
     Route: 048
     Dates: start: 20230221, end: 20230221
  2. ACETAMINOPHEN [Suspect]
     Active Substance: ACETAMINOPHEN
     Indication: Drug abuse
     Dosage: 1 G, QD (30 TABLETS)
     Route: 048
     Dates: start: 20230221, end: 20230221
  3. DELORAZEPAM [Suspect]
     Active Substance: DELORAZEPAM
     Indication: Drug abuse
     Dosage: 6 DF, QD
     Route: 048
     Dates: start: 20230221, end: 20230221
  4. VALPROIC ACID [Suspect]
     Active Substance: VALPROIC ACID
     Indication: Drug abuse
     Dosage: 300 MG, QD (30 TABLETS)
     Route: 048
     Dates: start: 20230221, end: 20230221
  5. ARIPIPRAZOLE [Concomitant]
     Active Substance: ARIPIPRAZOLE
     Dosage: 5 MG
  6. FLUOXETINE HYDROCHLORIDE [Concomitant]
     Active Substance: FLUOXETINE HYDROCHLORIDE
     Dosage: 20 MG
  7. PREGABALIN [Concomitant]
     Active Substance: PREGABALIN
     Dosage: 75 MG
  8. DELORAZEPAM [Concomitant]
     Active Substance: DELORAZEPAM
     Dosage: 2 MG

REACTIONS (1)
  - Drug abuse [Recovered/Resolved]

NARRATIVE: CASE EVENT DATE: 20230221
